FAERS Safety Report 5970647-X (Version None)
Quarter: 2008Q4

REPORT INFORMATION
  Report Type: 
  Country: None (occurrence: None)
  Receive Date: 20081126
  Receipt Date: 20081106
  Transmission Date: 20090506
  Serious: No
  Sender: FDA-Public Use
  Company Number: US-ABBOTT-08P-163-0486024-00

PATIENT
  Sex: Male

DRUGS (4)
  1. SIMCOR [Suspect]
     Indication: HYPERCHOLESTEROLAEMIA
     Dosage: 500MG/20MG AT BEDTIME
     Route: 048
     Dates: start: 20081103
  2. PERINDOPRIL [Concomitant]
     Indication: DRUG USE FOR UNKNOWN INDICATION
  3. PIOGLITAZONE [Concomitant]
     Indication: DRUG USE FOR UNKNOWN INDICATION
  4. ACETYLSALICYLIC ACID SRT [Concomitant]
     Indication: DRUG USE FOR UNKNOWN INDICATION

REACTIONS (3)
  - DIZZINESS [None]
  - FEELING HOT [None]
  - FLUSHING [None]
